FAERS Safety Report 11996273 (Version 1)
Quarter: 2016Q1

REPORT INFORMATION
  Report Type: Spontaneous
  Country: US (occurrence: US)
  Receive Date: 20160203
  Receipt Date: 20160203
  Transmission Date: 20160526
  Serious: Yes (Hospitalization)
  Sender: FDA-Public Use
  Company Number: US-ACTELION-A-NJ2016-130580

PATIENT
  Age: 71 Year
  Sex: Male

DRUGS (12)
  1. OMEPRAZOLE. [Concomitant]
     Active Substance: OMEPRAZOLE
  2. SPIRONOLACTONE. [Concomitant]
     Active Substance: SPIRONOLACTONE
  3. OPSUMIT [Suspect]
     Active Substance: MACITENTAN
     Indication: PRODUCT USED FOR UNKNOWN INDICATION
     Dosage: 10 MG, UNK
     Route: 048
     Dates: start: 20140311
  4. ADCIRCA [Concomitant]
     Active Substance: TADALAFIL
  5. METOPROLOL. [Concomitant]
     Active Substance: METOPROLOL
  6. BUMETANIDE. [Concomitant]
     Active Substance: BUMETANIDE
  7. DIOVAN [Concomitant]
     Active Substance: VALSARTAN
  8. COUMADIN [Concomitant]
     Active Substance: WARFARIN SODIUM
  9. TYVASO [Concomitant]
     Active Substance: TREPROSTINIL
  10. ALVESCO [Concomitant]
     Active Substance: CICLESONIDE
  11. OMNARIS [Concomitant]
     Active Substance: CICLESONIDE
  12. XOPENEX HFA [Concomitant]
     Active Substance: LEVALBUTEROL TARTRATE

REACTIONS (4)
  - Transfusion [Unknown]
  - Loss of consciousness [Recovered/Resolved]
  - Haemorrhage [Unknown]
  - Laceration [Recovering/Resolving]

NARRATIVE: CASE EVENT DATE: 20160114
